FAERS Safety Report 9867199 (Version 1)
Quarter: 2014Q1

REPORT INFORMATION
  Report Type: Spontaneous
  Country: US (occurrence: None)
  Receive Date: 20140131
  Receipt Date: 20140131
  Transmission Date: 20141002
  Serious: Yes (Death)
  Sender: FDA-Public Use
  Company Number: 2014AP000677

PATIENT
  Age: 44 Year
  Sex: Male

DRUGS (6)
  1. AMLODIPINE BESYLATE TABLETS [Suspect]
  2. PRAVASTATIN SODIUM TABLETS USP [Suspect]
  3. GEMFIBROZIL [Suspect]
  4. ATENOLOL [Suspect]
  5. INSULIN [Suspect]
  6. SALICYLATE [Suspect]

REACTIONS (1)
  - Completed suicide [None]
